FAERS Safety Report 9945741 (Version 1)
Quarter: 2014Q1

REPORT INFORMATION
  Report Type: Spontaneous
  Country: US (occurrence: US)
  Receive Date: 20140303
  Receipt Date: 20140303
  Transmission Date: 20141002
  Serious: No
  Sender: FDA-Public Use
  Company Number: US-AMGEN-USASP2013068903

PATIENT
  Age: 45 Year
  Sex: Male
  Weight: 99.77 kg

DRUGS (2)
  1. ENBREL [Suspect]
     Indication: PSORIATIC ARTHROPATHY
     Dosage: 25 MG 50 MG, QWK
     Route: 058
     Dates: start: 2000
  2. METHOTREXATE [Concomitant]
     Dosage: UNK

REACTIONS (1)
  - Injection site pain [Recovered/Resolved]
